FAERS Safety Report 5480387-1 (Version None)
Quarter: 2007Q4

REPORT INFORMATION
  Report Type: 
  Country: None (occurrence: None)
  Receive Date: 20071009
  Receipt Date: 20070928
  Transmission Date: 20080405
  Serious: Yes (Other)
  Sender: FDA-Public Use
  Company Number: US-JNJFOC-20071000416

PATIENT
  Sex: Male
  Weight: 81.65 kg

DRUGS (7)
  1. REMICADE [Suspect]
     Indication: RHEUMATOID ARTHRITIS
     Dosage: RECEIVED FOR APPROXIMATELY TWO AND A HALF YEARS
     Route: 042
  2. METHOTREXATE [Concomitant]
  3. TOPRAL [Concomitant]
  4. LIPITOR [Concomitant]
  5. FOLIC ACID [Concomitant]
  6. ASPIRIN [Concomitant]
  7. LISINOPRIL [Concomitant]

REACTIONS (2)
  - HEPATIC NEOPLASM [None]
  - RENAL NEOPLASM [None]
